FAERS Safety Report 7279284 (Version 2)
Quarter: 2022Q2

REPORT INFORMATION
  Report Type: Spontaneous
  Country: GR (occurrence: GR)
  Receive Date: 20100216
  Receipt Date: 20220407
  Transmission Date: 20220721
  Serious: Yes (Other)
  Sender: FDA-Public Use
  Company Number: GR-JNJFOC-20100203901

PATIENT
  Age: 35 Year
  Sex: Male

DRUGS (3)
  1. REMICADE [Suspect]
     Active Substance: INFLIXIMAB
     Indication: Crohn^s disease
     Dosage: RECEIVED 30 INFUSIONS IN TOTAL
     Route: 042
     Dates: start: 2000
  2. REMICADE [Suspect]
     Active Substance: INFLIXIMAB
     Route: 042
     Dates: start: 20100204
  3. REMICADE [Suspect]
     Active Substance: INFLIXIMAB
     Dosage: APPROXIMATELY 50 REMICADE INFUSIONS
     Route: 042
     Dates: start: 2002, end: 2015

REACTIONS (8)
  - Paralysis [Unknown]
  - Cataract [Unknown]
  - Pruritus [Recovered/Resolved]
  - Contusion [Recovered/Resolved with Sequelae]
  - Rash [Recovered/Resolved with Sequelae]
  - Toxicity to various agents [Unknown]
  - Insomnia [Unknown]
  - Nervous system disorder [Unknown]

NARRATIVE: CASE EVENT DATE: 20090201
